FAERS Safety Report 4887274-8 (Version None)
Quarter: 2005Q4

REPORT INFORMATION
  Report Type: 
  Country: None (occurrence: None)
  Receive Date: 20051220
  Receipt Date: 20041130
  Transmission Date: 20060501
  Serious: Yes (Other)
  Sender: FDA-Public Use
  Company Number: HQWYE762406DEC04

PATIENT
  Age: 57 Year
  Sex: Female
  Weight: 52.21 kg

DRUGS (17)
  1. EFFEXOR XR [Suspect]
     Indication: ANXIETY
     Dosage: 37.5 MG 1X PER 1 DAY, ORAL; SEE IMAGE
     Route: 048
     Dates: end: 20040701
  2. EFFEXOR XR [Suspect]
     Indication: DEPRESSION
     Dosage: 37.5 MG 1X PER 1 DAY, ORAL; SEE IMAGE
     Route: 048
     Dates: end: 20040701
  3. EFFEXOR XR [Suspect]
     Indication: ANXIETY
     Dosage: 37.5 MG 1X PER 1 DAY, ORAL; SEE IMAGE
     Route: 048
     Dates: start: 20040701, end: 20040927
  4. EFFEXOR XR [Suspect]
     Indication: DEPRESSION
     Dosage: 37.5 MG 1X PER 1 DAY, ORAL; SEE IMAGE
     Route: 048
     Dates: start: 20040701, end: 20040927
  5. EFFEXOR XR [Suspect]
     Indication: ANXIETY
     Dosage: 37.5 MG 1X PER 1 DAY, ORAL; SEE IMAGE
     Route: 048
     Dates: start: 20040928, end: 20041007
  6. EFFEXOR XR [Suspect]
     Indication: DEPRESSION
     Dosage: 37.5 MG 1X PER 1 DAY, ORAL; SEE IMAGE
     Route: 048
     Dates: start: 20040928, end: 20041007
  7. EFFEXOR XR [Suspect]
     Indication: ANXIETY
     Dosage: 37.5 MG 1X PER 1 DAY, ORAL; SEE IMAGE
     Route: 048
     Dates: start: 20041008, end: 20041017
  8. EFFEXOR XR [Suspect]
     Indication: DEPRESSION
     Dosage: 37.5 MG 1X PER 1 DAY, ORAL; SEE IMAGE
     Route: 048
     Dates: start: 20041008, end: 20041017
  9. EFFEXOR XR [Suspect]
     Indication: ANXIETY
     Dosage: 37.5 MG 1X PER 1 DAY, ORAL; SEE IMAGE
     Route: 048
     Dates: start: 20041018, end: 20041027
  10. EFFEXOR XR [Suspect]
     Indication: DEPRESSION
     Dosage: 37.5 MG 1X PER 1 DAY, ORAL; SEE IMAGE
     Route: 048
     Dates: start: 20041018, end: 20041027
  11. EFFEXOR XR [Suspect]
     Indication: ANXIETY
     Dosage: 37.5 MG 1X PER 1 DAY, ORAL; SEE IMAGE
     Route: 048
     Dates: start: 20041028, end: 20041106
  12. EFFEXOR XR [Suspect]
     Indication: DEPRESSION
     Dosage: 37.5 MG 1X PER 1 DAY, ORAL; SEE IMAGE
     Route: 048
     Dates: start: 20041028, end: 20041106
  13. EFFEXOR XR [Suspect]
     Indication: ANXIETY
     Dosage: 37.5 MG 1X PER 1 DAY, ORAL; SEE IMAGE
     Route: 048
     Dates: start: 20021105
  14. EFFEXOR XR [Suspect]
     Indication: DEPRESSION
     Dosage: 37.5 MG 1X PER 1 DAY, ORAL; SEE IMAGE
     Route: 048
     Dates: start: 20021105
  15. EVISTA [Concomitant]
  16. ROCALTROL [Concomitant]
  17. LEVOXYL [Concomitant]

REACTIONS (9)
  - CONDITION AGGRAVATED [None]
  - CONSTIPATION [None]
  - CRYING [None]
  - DISTURBANCE IN ATTENTION [None]
  - DRUG WITHDRAWAL SYNDROME [None]
  - FATIGUE [None]
  - PARAESTHESIA [None]
  - SLEEP DISORDER [None]
  - TINNITUS [None]
